FAERS Safety Report 5644394-8 (Version None)
Quarter: 2008Q1

REPORT INFORMATION
  Report Type: 
  Country: None (occurrence: None)
  Receive Date: 20080229
  Receipt Date: 20080219
  Transmission Date: 20080703
  Serious: Yes (Hospitalization)
  Sender: FDA-Public Use
  Company Number: GB-AMGEN-US262321

PATIENT
  Sex: Female
  Weight: 93 kg

DRUGS (10)
  1. ENBREL [Suspect]
     Indication: RHEUMATOID ARTHRITIS
     Route: 058
     Dates: start: 20040115
  2. PREDNISOLONE [Concomitant]
     Dosage: UNKNOWN
     Route: 065
  3. AMITRIPTYLINE HCL [Concomitant]
     Dosage: UNKNOWN
     Route: 065
  4. FUROSEMIDE [Concomitant]
     Dosage: UNKNOWN
     Route: 065
  5. FOLIC ACID [Concomitant]
     Dosage: UNKNOWN
     Route: 065
  6. SOLPADOL [Concomitant]
     Dosage: UNKNOWN
     Route: 065
  7. LEVOTHYROXINE SODIUM [Concomitant]
     Dosage: UNKNOWN
     Route: 065
  8. METHOTREXATE [Concomitant]
     Dosage: UNKNOWN
     Route: 065
  9. DICLOFENAC SODIUM [Concomitant]
     Dosage: UNKNOWN
     Route: 065
  10. UNSPECIFIED HORMONE REPLACEMENT THERAPY AGENT [Concomitant]
     Route: 065

REACTIONS (3)
  - CHILLS [None]
  - ESCHERICHIA INFECTION [None]
  - HYPERHIDROSIS [None]
